FAERS Safety Report 11398335 (Version 1)
Quarter: 2015Q3

REPORT INFORMATION
  Report Type: Report from Study
  Country: US (occurrence: US)
  Receive Date: 20150820
  Receipt Date: 20150820
  Transmission Date: 20151125
  Serious: No
  Sender: FDA-Public Use
  Company Number: US-AMGEN-USASL2015082585

PATIENT
  Age: 73 Year
  Sex: Female

DRUGS (1)
  1. ENBREL [Suspect]
     Active Substance: ETANERCEPT
     Indication: RHEUMATOID ARTHRITIS
     Dosage: 50 MG, UNK
     Route: 065
     Dates: start: 2013, end: 2015

REACTIONS (6)
  - Arthropathy [Unknown]
  - Osteoarthritis [Unknown]
  - Bone density decreased [Unknown]
  - Pain in extremity [Unknown]
  - Grip strength decreased [Unknown]
  - Drug ineffective [Unknown]
